FAERS Safety Report 6480404-6 (Version None)
Quarter: 2009Q4

REPORT INFORMATION
  Report Type: 
  Country: None (occurrence: None)
  Receive Date: 20091208
  Receipt Date: 20091029
  Transmission Date: 20100525
  Serious: Yes (Hospitalization)
  Sender: FDA-Public Use
  Company Number: US-SANOFI-AVENTIS-200918566US

PATIENT
  Age: 51 Year
  Sex: Female
  Weight: 82.6 kg

DRUGS (7)
  1. INSULIN GLARGINE [Suspect]
     Dosage: DOSE:48 UNIT(S)
     Route: 058
     Dates: start: 20030101
  2. SOLOSTAR [Suspect]
     Dosage: DOSE:48 UNIT(S)
     Route: 058
  3. SOLOSTAR [Suspect]
  4. METFORMIN HCL [Concomitant]
  5. ENALAPRIL [Concomitant]
  6. XANAX [Concomitant]
     Indication: DEPRESSION
  7. WELLBUTRIN [Concomitant]
     Indication: DEPRESSION

REACTIONS (2)
  - VOMITING [None]
  - WEIGHT DECREASED [None]
